FAERS Safety Report 10245286 (Version 1)
Quarter: 2014Q2

REPORT INFORMATION
  Report Type: Spontaneous
  Country: JP (occurrence: JP)
  Receive Date: 20140618
  Receipt Date: 20140618
  Transmission Date: 20141212
  Serious: Yes (Hospitalization)
  Sender: FDA-Public Use
  Company Number: JP-PFIZER INC-2014167425

PATIENT
  Age: 18 Month
  Sex: Female
  Weight: 7.2 kg

DRUGS (12)
  1. REVATIO [Suspect]
     Indication: PULMONARY HYPERTENSION
     Dosage: UNK
     Route: 048
     Dates: start: 20110623, end: 20110711
  2. GASCON [Concomitant]
     Dosage: UNK
     Route: 051
  3. GASMOTIN [Concomitant]
     Dosage: UNK
     Route: 051
     Dates: end: 20120812
  4. BIOFERMIN R [Concomitant]
     Dosage: UNK
     Route: 051
  5. AMBROXOL HYDROCHLORIDE [Concomitant]
     Dosage: UNK
     Route: 051
  6. MUCODYNE [Concomitant]
     Dosage: UNK
     Route: 051
     Dates: end: 20120812
  7. ERYTHROCIN [Concomitant]
     Dosage: UNK
     Route: 051
     Dates: end: 20120812
  8. BAKTAR [Concomitant]
     Dosage: UNK
     Route: 051
  9. FAMOSTAGINE [Concomitant]
     Dosage: UNK
     Route: 051
  10. PULMICORT [Concomitant]
     Dosage: UNK
     Route: 055
  11. FUROSEMIDE [Concomitant]
     Dosage: UNK
     Route: 051
  12. ALDACTONE-A [Concomitant]
     Dosage: UNK
     Route: 051

REACTIONS (1)
  - Blood pressure decreased [Recovered/Resolved]
